FAERS Safety Report 15367766 (Version 2)
Quarter: 2020Q2

REPORT INFORMATION
  Report Type: Spontaneous
  Country: IL (occurrence: IL)
  Receive Date: 20180910
  Receipt Date: 20200520
  Transmission Date: 20200713
  Serious: Yes (Hospitalization, Other)
  Sender: FDA-Public Use
  Company Number: IL-SA-2018SA243973

PATIENT
  Age: 77 Year
  Sex: Male

DRUGS (9)
  1. PLAVIX [Suspect]
     Active Substance: CLOPIDOGREL BISULFATE
  2. FOLIC ACID. [Concomitant]
     Active Substance: FOLIC ACID
  3. ATENOLOL. [Concomitant]
     Active Substance: ATENOLOL
  4. ACETYLSALICYLIC ACID [Suspect]
     Active Substance: ASPIRIN
  5. CITALOPRAM [Concomitant]
     Active Substance: CITALOPRAM HYDROBROMIDE
  6. ALFACALCIDOL [Concomitant]
     Active Substance: ALFACALCIDOL
  7. LIPITOR [Concomitant]
     Active Substance: ATORVASTATIN CALCIUM
  8. ENALAPRIL [Concomitant]
     Active Substance: ENALAPRIL
  9. LANSOPRAZOLE. [Concomitant]
     Active Substance: LANSOPRAZOLE

REACTIONS (3)
  - Head injury [Unknown]
  - Subdural haemorrhage [Unknown]
  - Seizure [Unknown]
